FAERS Safety Report 7958288-6 (Version None)
Quarter: 2011Q4

REPORT INFORMATION
  Report Type: 
  Country: None (occurrence: None)
  Receive Date: 20111205
  Receipt Date: 20100726
  Transmission Date: 20120403
  Serious: Yes (Other)
  Sender: FDA-Public Use
  Company Number: PHHY2010FR092710

PATIENT

DRUGS (3)
  1. CYCLOSPORINE [Suspect]
     Indication: TOXIC EPIDERMAL NECROLYSIS
     Dosage: 1.5 MG/KG, BID FOR 10 DAYS
     Route: 048
  2. CYCLOSPORINE [Suspect]
     Dosage: 1.5 MG/KG, BID FOR 10 DAYS
     Route: 048
  3. CYCLOSPORINE [Suspect]
     Dosage: 1.5 MG/KG, BID FOR 10 DAYS
     Route: 048

REACTIONS (2)
  - LUNG DISORDER [None]
  - NOSOCOMIAL INFECTION [None]
